FAERS Safety Report 4630293-7 (Version None)
Quarter: 2005Q2

REPORT INFORMATION
  Report Type: 
  Country: None (occurrence: None)
  Receive Date: 20050408
  Receipt Date: 20050329
  Transmission Date: 20051028
  Serious: Yes (Hospitalization)
  Sender: FDA-Public Use
  Company Number: 200512550US

PATIENT
  Sex: Male

DRUGS (8)
  1. LANTUS [Suspect]
     Indication: DIABETES MELLITUS NON-INSULIN-DEPENDENT
     Dosage: DOSE UNIT: UNITS
     Route: 058
     Dates: start: 20050303, end: 20050319
  2. OPTICLIK (INSULIN INJECTION PEN) [Suspect]
     Dosage: DOSE: UNK
     Dates: end: 20050319
  3. ORAL ANTIDIABETICS [Concomitant]
     Dosage: DOSE: UNK
  4. UNKNOWN DRUG [Concomitant]
     Dosage: DOSE: UNK
     Dates: start: 20050301
  5. ALLEGRA [Concomitant]
     Dosage: DOSE: UNK
  6. HYDROCHLOROTHIAZIDE [Concomitant]
     Dosage: DOSE: UNK
  7. CADUET [Concomitant]
     Dosage: DOSE: UNK
  8. GLUCOVANCE [Concomitant]
     Dosage: DOSE: UNK

REACTIONS (5)
  - ABDOMINAL PAIN UPPER [None]
  - BIPOLAR DISORDER [None]
  - BLOOD GLUCOSE INCREASED [None]
  - MANIA [None]
  - PSYCHOMOTOR HYPERACTIVITY [None]
